FAERS Safety Report 21153996 (Version 3)
Quarter: 2022Q4

REPORT INFORMATION
  Report Type: Report from Study
  Country: US (occurrence: US)
  Receive Date: 20220801
  Receipt Date: 20221020
  Transmission Date: 20230113
  Serious: No
  Sender: FDA-Public Use
  Company Number: US-ACADIA PHARMACEUTICALS INC.-ACA-2022-PIM-002288

PATIENT
  Sex: Male

DRUGS (10)
  1. NUPLAZID [Suspect]
     Active Substance: PIMAVANSERIN TARTRATE
     Indication: Parkinson^s disease psychosis
     Dosage: 34 MILLIGRAM, QD
     Route: 048
     Dates: start: 202206, end: 20220823
  2. NUPLAZID [Suspect]
     Active Substance: PIMAVANSERIN TARTRATE
     Indication: Hallucination
     Dosage: 34 MILLIGRAM, QD
     Route: 048
  3. NUPLAZID [Suspect]
     Active Substance: PIMAVANSERIN TARTRATE
     Indication: Delusion
  4. NUPLAZID [Suspect]
     Active Substance: PIMAVANSERIN TARTRATE
     Indication: Parkinson^s disease
  5. NORTRIPTYLINE [Suspect]
     Active Substance: NORTRIPTYLINE
     Dosage: 1
  6. RASAGILINE [Suspect]
     Active Substance: RASAGILINE
     Dosage: 1 MILLIGRAM
  7. ROPINIROLE [Concomitant]
     Active Substance: ROPINIROLE
  8. RASAGILINE MESYLATE [Concomitant]
     Active Substance: RASAGILINE MESYLATE
  9. OMEPRAZOLE [Concomitant]
     Active Substance: OMEPRAZOLE
  10. FAMOTIDINE [Concomitant]
     Active Substance: FAMOTIDINE

REACTIONS (8)
  - Adverse drug reaction [Unknown]
  - Condition aggravated [Unknown]
  - Anxiety [Unknown]
  - Parkinson^s disease [Unknown]
  - Speech disorder [Unknown]
  - Drug interaction [Unknown]
  - Nausea [Unknown]
  - Hallucination, visual [Unknown]

NARRATIVE: CASE EVENT DATE: 20220101
